FAERS Safety Report 6292404-X (Version None)
Quarter: 2009Q3

REPORT INFORMATION
  Report Type: 
  Country: None (occurrence: None)
  Receive Date: 20090731
  Receipt Date: 20090723
  Transmission Date: 20100115
  Serious: Yes (Other)
  Sender: FDA-Public Use
  Company Number: PHEH2009US08118

PATIENT
  Sex: Male

DRUGS (3)
  1. SANDOSTATIN LAR [Suspect]
     Indication: THYMOMA
     Dosage: UNK
     Dates: start: 20090623
  2. SANDOSTATIN LAR [Interacting]
     Indication: LUNG NEOPLASM MALIGNANT
  3. COUMADIN [Interacting]
     Indication: HEART RATE IRREGULAR

REACTIONS (1)
  - INTERNATIONAL NORMALISED RATIO INCREASED [None]
